FAERS Safety Report 11634546 (Version 4)
Quarter: 2016Q1

REPORT INFORMATION
  Report Type: Report from Study
  Country: JP (occurrence: JP)
  Receive Date: 20151015
  Receipt Date: 20160123
  Transmission Date: 20160525
  Serious: Yes (Hospitalization, Other)
  Sender: FDA-Public Use
  Company Number: JP-REGENERON PHARMACEUTICALS, INC.-2015-12896

PATIENT

DRUGS (18)
  1. AFLIBERCEPT [Suspect]
     Active Substance: AFLIBERCEPT
     Dosage: 50 MICROLITER, ONCE, RUN-IN TREATMENT
     Route: 031
     Dates: start: 20151221, end: 20151221
  2. METFORMIN [Concomitant]
     Active Substance: METFORMIN HYDROCHLORIDE
     Indication: DIABETES MELLITUS
     Dosage: 250 MG, TID
     Route: 048
     Dates: start: 20151013
  3. EYLEA [Suspect]
     Active Substance: AFLIBERCEPT
     Dosage: 50 MICROLITER, ONCE, RUN-IN TREATMENT
     Route: 031
     Dates: start: 20151102, end: 20151102
  4. BLINDED LASER [Suspect]
     Active Substance: DEVICE
  5. BACILLUS MESENTERICUS W/CLOSTRIDIUM/07959301/ [Concomitant]
     Indication: DIARRHOEA
     Dosage: 1 DF, BID
     Route: 048
     Dates: start: 20151021
  6. EYLEA [Suspect]
     Active Substance: AFLIBERCEPT
     Indication: POLYPOIDAL CHOROIDAL VASCULOPATHY
     Dosage: 50 MICROLITER, ONCE, RUN-IN TREATMENT
     Dates: start: 20150713, end: 20150713
  7. EYLEA [Suspect]
     Active Substance: AFLIBERCEPT
     Dosage: 50 MICROLITER, ONCE, RUN-IN TREATMENT
     Route: 031
     Dates: start: 20151221, end: 20151221
  8. AFLIBERCEPT [Suspect]
     Active Substance: AFLIBERCEPT
     Dosage: 50 MICROLITER, ONCE, RUN-IN TREATMENT
     Route: 031
     Dates: start: 20150907, end: 20150907
  9. AFLIBERCEPT [Suspect]
     Active Substance: AFLIBERCEPT
     Dosage: 50 MICROLITER, ONCE, RUN-IN TREATMENT
     Route: 031
     Dates: start: 20151102, end: 20151102
  10. PANTOSIN [Concomitant]
     Active Substance: PANTETHINE
     Dosage: 400 MG, ONCE
     Route: 042
     Dates: start: 20151005, end: 20151009
  11. AFLIBERCEPT [Suspect]
     Active Substance: AFLIBERCEPT
     Dosage: 50 MICROLITER, ONCE, RUN-IN TREATMENT
     Route: 031
     Dates: start: 20150810, end: 20150810
  12. VISUDYNE [Suspect]
     Active Substance: VERTEPORFIN
     Indication: POLYPOIDAL CHOROIDAL VASCULOPATHY
  13. EYLEA [Suspect]
     Active Substance: AFLIBERCEPT
     Dosage: 50 MICROLITER, ONCE, RUN-IN TREATMENT
     Dates: start: 20150810, end: 20150810
  14. EYLEA [Suspect]
     Active Substance: AFLIBERCEPT
     Dosage: 50 MICROLITER, ONCE, RUN-IN TREATMENT
     Dates: start: 20150907, end: 20150907
  15. AFLIBERCEPT [Suspect]
     Active Substance: AFLIBERCEPT
     Indication: POLYPOIDAL CHOROIDAL VASCULOPATHY
     Dosage: 50 MICROLITER, ONCE, RUN-IN TREATMENT
     Route: 031
     Dates: start: 20150713, end: 20150713
  16. PLACEBO [Suspect]
     Active Substance: UNSPECIFIED INGREDIENT
  17. LOPEMIN [Concomitant]
     Active Substance: LOPERAMIDE HYDROCHLORIDE
     Indication: DIARRHOEA
     Dosage: 1 G, QD
     Route: 048
     Dates: start: 20151021
  18. CEFPODOXIME PROXETIL. [Concomitant]
     Active Substance: CEFPODOXIME PROXETIL
     Indication: INFECTION PROPHYLAXIS
     Dosage: 1FROM STUDY APPLICATION DAY 4,100 MG, BID
     Route: 048
     Dates: start: 20151102

REACTIONS (1)
  - Ileus [Recovered/Resolved]

NARRATIVE: CASE EVENT DATE: 20151005
